FAERS Safety Report 20128544 (Version 1)
Quarter: 2021Q4

REPORT INFORMATION
  Report Type: Spontaneous
  Country: None (occurrence: CN)
  Receive Date: 20211130
  Receipt Date: 20211130
  Transmission Date: 20220303
  Serious: Yes (Other)
  Sender: FDA-Public Use
  Company Number: CN-Jiangsu Hengrui Medicine Co., Ltd.-2122462

PATIENT
  Age: 95 Year
  Sex: Male
  Weight: 61 kg

DRUGS (3)
  1. GABAPENTIN [Suspect]
     Active Substance: GABAPENTIN
     Indication: Post herpetic neuralgia
     Route: 048
     Dates: start: 20201222, end: 20210108
  2. ACYCLOVIR [Suspect]
     Active Substance: ACYCLOVIR
     Route: 041
     Dates: start: 20201222, end: 20210106
  3. SODIUM CHLORIDE [Concomitant]
     Active Substance: SODIUM CHLORIDE
     Route: 041
     Dates: start: 20201222, end: 20210106

REACTIONS (2)
  - Transaminases increased [Unknown]
  - Blood creatinine abnormal [Unknown]

NARRATIVE: CASE EVENT DATE: 20210105
